FAERS Safety Report 20498922 (Version 6)
Quarter: 2022Q3

REPORT INFORMATION
  Report Type: Report from Study
  Country: US (occurrence: US)
  Receive Date: 20220222
  Receipt Date: 20220810
  Transmission Date: 20221026
  Serious: No
  Sender: FDA-Public Use
  Company Number: US-NOVARTISTESTPH-NVSC2022US039570

PATIENT
  Sex: Male

DRUGS (1)
  1. ENTRESTO [Suspect]
     Active Substance: SACUBITRIL\VALSARTAN
     Indication: Product used for unknown indication
     Dosage: 0.5 DOSAGE FORM, BID (1/2 PILL TWICE A DAY)
     Route: 065
     Dates: start: 202202

REACTIONS (4)
  - Confusional state [Unknown]
  - Blood pressure increased [Unknown]
  - Peripheral artery aneurysm [Unknown]
  - Wrong technique in product usage process [Unknown]
